FAERS Safety Report 6498635-8 (Version None)
Quarter: 2009Q4

REPORT INFORMATION
  Report Type: 
  Country: None (occurrence: None)
  Receive Date: 20091127
  Receipt Date: 20090716
  Transmission Date: 20100525
  Serious: Yes (Life-Threatening, Hospitalization)
  Sender: FDA-Public Use
  Company Number: 287998

PATIENT
  Age: 84 Year
  Sex: Male
  Weight: 63.5 kg

DRUGS (11)
  1. NOVOLOG MIX 70/30 [Suspect]
     Indication: INSULIN-REQUIRING TYPE 2 DIABETES MELLITUS
     Dosage: 12 IU, BID, SUBCUTANEOUS, 6IU,BID,SUBCUTANEOUS, 3. IU QHS, SUBCUTANCEOUS
     Route: 058
     Dates: start: 20090501, end: 20090501
  2. NOVOLOG MIX 70/30 [Suspect]
     Indication: INSULIN-REQUIRING TYPE 2 DIABETES MELLITUS
     Dosage: 12 IU, BID, SUBCUTANEOUS, 6IU,BID,SUBCUTANEOUS, 3. IU QHS, SUBCUTANCEOUS
     Route: 058
     Dates: start: 20090526, end: 20090526
  3. HYDROCHLOROTHIAZIDE [Concomitant]
  4. NORVASC /00972401/ (AMLODIPINE) [Concomitant]
  5. ISOSORBIDE (ISOSORBIDE) [Concomitant]
  6. QUINAPRIL HCL [Concomitant]
  7. LABETALOL HCL [Concomitant]
  8. ASPIRIN [Concomitant]
  9. ACCUPRIL [Concomitant]
  10. PLAVIX [Concomitant]
  11. VYTORIN [Concomitant]

REACTIONS (2)
  - HYPOGLYCAEMIC SEIZURE [None]
  - HYPOGLYCAEMIC UNCONSCIOUSNESS [None]
